FAERS Safety Report 24199861 (Version 7)
Quarter: 2024Q4

REPORT INFORMATION
  Report Type: Spontaneous
  Country: US (occurrence: US)
  Receive Date: 20240812
  Receipt Date: 20241122
  Transmission Date: 20250115
  Serious: No
  Sender: PFIZER
  Company Number: US-PFIZER INC-202400226018

PATIENT
  Age: 16 Year
  Sex: Male
  Weight: 63.5 kg

DRUGS (2)
  1. GENOTROPIN [Suspect]
     Active Substance: SOMATROPIN
     Indication: Blood growth hormone abnormal
     Dosage: 2.2 MG, DAILY
  2. GENOTROPIN [Suspect]
     Active Substance: SOMATROPIN
     Dosage: 2.8 MG, ONCE A DAY
     Dates: start: 202301

REACTIONS (3)
  - Drug dose omission by device [Unknown]
  - Expired device used [Unknown]
  - Device mechanical issue [Unknown]
